FAERS Safety Report 5523513-8 (Version None)
Quarter: 2007Q4

REPORT INFORMATION
  Report Type: 
  Country: None (occurrence: None)
  Receive Date: 20071121
  Receipt Date: 20071112
  Transmission Date: 20080405
  Serious: Yes (Other)
  Sender: FDA-Public Use
  Company Number: JP-JNJFOC-20071105475

PATIENT
  Age: 49 Year
  Sex: Female

DRUGS (1)
  1. ITRIZOLE [Suspect]
     Indication: TINEA INFECTION
     Route: 048

REACTIONS (1)
  - SWELLING FACE [None]
